FAERS Safety Report 11789999 (Version 2)
Quarter: 2015Q4

REPORT INFORMATION
  Report Type: Spontaneous
  Country: US (occurrence: US)
  Receive Date: 20151201
  Receipt Date: 20151222
  Transmission Date: 20160305
  Serious: No
  Sender: FDA-Public Use
  Company Number: US-ASTRAZENECA-2015SF09560

PATIENT
  Age: 73 Year
  Sex: Female
  Weight: 105.2 kg

DRUGS (1)
  1. BYDUREON [Suspect]
     Active Substance: EXENATIDE
     Indication: TYPE 2 DIABETES MELLITUS
     Route: 058

REACTIONS (5)
  - Product use issue [Unknown]
  - Weight decreased [Unknown]
  - Product quality issue [Unknown]
  - Upper-airway cough syndrome [Unknown]
  - Sinusitis [Unknown]
